FAERS Safety Report 19252497 (Version 1)
Quarter: 2021Q2

REPORT INFORMATION
  Report Type: Spontaneous
  Country: US (occurrence: US)
  Receive Date: 20210512
  Receipt Date: 20210512
  Transmission Date: 20210717
  Serious: No
  Sender: FDA-Public Use
  Company Number: US-AMGEN-USASP2021070790

PATIENT

DRUGS (2)
  1. MVASI [Suspect]
     Active Substance: BEVACIZUMAB-AWWB
     Dosage: 390 MILLIGRAM
     Route: 065
  2. MVASI [Suspect]
     Active Substance: BEVACIZUMAB-AWWB
     Indication: OVARIAN CANCER
     Dosage: UNK
     Route: 065
     Dates: start: 202103

REACTIONS (1)
  - Blood pressure abnormal [Unknown]

NARRATIVE: CASE EVENT DATE: 20210426
